FAERS Safety Report 7668377-1 (Version None)
Quarter: 2011Q3

REPORT INFORMATION
  Report Type: 
  Country: None (occurrence: None)
  Receive Date: 20110808
  Receipt Date: 20110802
  Transmission Date: 20111222
  Serious: Yes (Other)
  Sender: FDA-Public Use
  Company Number: JP-PFIZER INC-2011164153

PATIENT
  Age: 88 Year
  Sex: Female

DRUGS (1)
  1. DIFLUCAN [Suspect]
     Indication: PROPHYLAXIS
     Dosage: 100 MG/DAY
     Route: 048

REACTIONS (1)
  - RENAL IMPAIRMENT [None]
